FAERS Safety Report 9854685 (Version 1)
Quarter: 2014Q1

REPORT INFORMATION
  Report Type: Spontaneous
  Country: ES (occurrence: ES)
  Receive Date: 20140130
  Receipt Date: 20140130
  Transmission Date: 20141002
  Serious: Yes (Other)
  Sender: FDA-Public Use
  Company Number: ES-BRISTOL-MYERS SQUIBB COMPANY-20069605

PATIENT
  Age: 63 Year
  Sex: Male

DRUGS (4)
  1. BYDUREON [Suspect]
     Indication: DIABETES MELLITUS
     Dosage: INT:02-DEC-2013
     Route: 058
     Dates: start: 20130628
  2. METFORMIN HCL [Suspect]
     Indication: DIABETES MELLITUS
     Route: 048
  3. LOSARTAN [Concomitant]
     Indication: HYPERTENSION
     Route: 048
  4. SERTRALINE [Concomitant]
     Route: 048

REACTIONS (3)
  - Foreign body reaction [Recovered/Resolved]
  - Injection site granuloma [Recovered/Resolved]
  - Drug ineffective [Unknown]
